FAERS Safety Report 19745025 (Version 1)
Quarter: 2021Q3

REPORT INFORMATION
  Report Type: Spontaneous
  Country: GB (occurrence: GB)
  Receive Date: 20210825
  Receipt Date: 20210825
  Transmission Date: 20211014
  Serious: Yes (Death)
  Sender: FDA-Public Use
  Company Number: GB-TORRENT-00026312

PATIENT
  Age: 40 Year
  Sex: Male

DRUGS (2)
  1. RISPERIDONE. [Suspect]
     Active Substance: RISPERIDONE
     Indication: SCHIZOPHRENIA
     Dosage: UNKNOWN
  2. PAROXETINE. [Interacting]
     Active Substance: PAROXETINE
     Indication: SCHIZOPHRENIA
     Dosage: UNKNOWN

REACTIONS (2)
  - Drug interaction [Fatal]
  - Toxicity to various agents [Fatal]
